FAERS Safety Report 7369896 (Version 4)
Quarter: 2016Q4

REPORT INFORMATION
  Report Type: Report from Study
  Country: DE (occurrence: DE)
  Receive Date: 20100429
  Receipt Date: 20161110
  Transmission Date: 20170207
  Serious: Yes (Hospitalization)
  Sender: FDA-Public Use
  Company Number: DE-JNJFOC-20100405538

PATIENT
  Sex: Male
  Weight: 85 kg

DRUGS (5)
  1. PARACETAMOL [Concomitant]
     Active Substance: ACETAMINOPHEN
     Indication: ANALGESIC THERAPY
     Route: 048
  2. PANTOPRAZOLE [Concomitant]
     Active Substance: PANTOPRAZOLE SODIUM
     Route: 048
  3. MYCOZOL [Concomitant]
  4. REMICADE [Suspect]
     Active Substance: INFLIXIMAB
     Indication: COLITIS ULCERATIVE
     Route: 042
     Dates: start: 20090105, end: 20090908
  5. REMICADE [Suspect]
     Active Substance: INFLIXIMAB
     Indication: COLITIS ULCERATIVE
     Route: 042
     Dates: start: 20091021, end: 20100224

REACTIONS (10)
  - Scrotal mass [Recovered/Resolved]
  - Blood creatinine increased [Recovered/Resolved]
  - Colitis ulcerative [Recovered/Resolved]
  - Tubulointerstitial nephritis [Unknown]
  - Urinary tract infection [Recovered/Resolved]
  - Intentional overdose [Recovered/Resolved]
  - Arrhythmia [Recovered/Resolved]
  - Postoperative wound infection [Recovered/Resolved]
  - Megacolon [Unknown]
  - Intestinal obstruction [Recovered/Resolved]

NARRATIVE: CASE EVENT DATE: 20100315
